FAERS Safety Report 13093128 (Version 1)
Quarter: 2017Q1

REPORT INFORMATION
  Report Type: Spontaneous
  Country: US (occurrence: US)
  Receive Date: 20170105
  Receipt Date: 20170105
  Transmission Date: 20170428
  Serious: Yes (Death)
  Sender: FDA-Public Use
  Company Number: None

PATIENT
  Age: 66 Year
  Sex: Male

DRUGS (8)
  1. NORVASC [Concomitant]
     Active Substance: AMLODIPINE BESYLATE
  2. PRAVASTATIN. [Concomitant]
     Active Substance: PRAVASTATIN
  3. XARELTO [Concomitant]
     Active Substance: RIVAROXABAN
  4. CIALIS [Concomitant]
     Active Substance: TADALAFIL
  5. GLIPIZIDE ER [Concomitant]
     Active Substance: GLIPIZIDE
  6. DILTIAZEM. [Concomitant]
     Active Substance: DILTIAZEM
  7. METFORMIN [Concomitant]
     Active Substance: METFORMIN HYDROCHLORIDE
  8. XALKORI [Suspect]
     Active Substance: CRIZOTINIB
     Indication: NEOPLASM MALIGNANT
     Route: 048
     Dates: start: 20160311, end: 20170102

REACTIONS (1)
  - Death [None]

NARRATIVE: CASE EVENT DATE: 20170102
